FAERS Safety Report 12879250 (Version 1)
Quarter: 2016Q4

REPORT INFORMATION
  Report Type: Spontaneous
  Country: DK (occurrence: DK)
  Receive Date: 20161025
  Receipt Date: 20161025
  Transmission Date: 20170207
  Serious: Yes (Other)
  Sender: FDA-Public Use
  Company Number: DK-BRISTOL-MYERS SQUIBB COMPANY-BMS-2016-078761

PATIENT
  Age: 27 Year
  Sex: Female

DRUGS (1)
  1. TRIAMCINOLONE ACETONIDE. [Suspect]
     Active Substance: TRIAMCINOLONE ACETONIDE
     Indication: EPICONDYLITIS
     Dosage: UNK
     Route: 030
     Dates: start: 20140718

REACTIONS (8)
  - Nervous system disorder [Unknown]
  - Sensory disturbance [Unknown]
  - Product use issue [Unknown]
  - Plastic surgery [Unknown]
  - Bone disorder [Unknown]
  - Skin discolouration [Unknown]
  - Lipoatrophy [Unknown]
  - Arthralgia [Unknown]

NARRATIVE: CASE EVENT DATE: 20140918
